FAERS Safety Report 5195876-7 (Version None)
Quarter: 2007Q1

REPORT INFORMATION
  Report Type: 
  Country: None (occurrence: None)
  Receive Date: 20070102
  Receipt Date: 20061222
  Transmission Date: 20070707
  Serious: Yes (Hospitalization)
  Sender: FDA-Public Use
  Company Number: JP-JPN-A200605017

PATIENT
  Age: 81 Year
  Sex: Female

DRUGS (11)
  1. PAXIL [Suspect]
     Indication: DEPRESSION
     Dosage: 10MG PER DAY
     Route: 048
     Dates: start: 20061012, end: 20061019
  2. DIOVAN [Concomitant]
     Indication: HYPERTENSION
     Dosage: 80MG PER DAY
     Route: 048
     Dates: start: 20021028
  3. BEPRICOR [Concomitant]
     Indication: ATRIAL FIBRILLATION
     Dosage: 200MG PER DAY
     Route: 048
     Dates: start: 20060601
  4. WARFARIN SODIUM [Concomitant]
     Indication: PULMONARY EMBOLISM
     Dosage: 1MG PER DAY
     Route: 048
     Dates: start: 20030601
  5. GASTER D [Concomitant]
     Indication: GASTRITIS
     Dosage: 20MG PER DAY
     Route: 048
     Dates: start: 20050901
  6. ALLOPURINOL [Concomitant]
     Dosage: 100MG PER DAY
     Route: 048
     Dates: start: 20030701
  7. CYANOCOBALAMIN [Concomitant]
     Indication: VITAMIN B12 DEFICIENCY
     Dosage: 1500MCG PER DAY
     Route: 048
     Dates: start: 20040401
  8. FOLIAMIN [Concomitant]
     Indication: FOLATE DEFICIENCY
     Dosage: 15MG PER DAY
     Route: 048
     Dates: start: 20061027
  9. ALOSENN [Concomitant]
     Indication: CONSTIPATION
     Dosage: .5G PER DAY
     Route: 048
     Dates: start: 20030601
  10. MYSLEE [Concomitant]
     Indication: INSOMNIA
     Dosage: 5MG PER DAY
     Route: 048
     Dates: start: 20030701
  11. BENET [Concomitant]
     Indication: OSTEOPOROSIS
     Dosage: 2.5MG PER DAY
     Route: 048
     Dates: start: 20031201, end: 20061019

REACTIONS (7)
  - ANOREXIA [None]
  - BLOOD ANTIDIURETIC HORMONE INCREASED [None]
  - DEPRESSED LEVEL OF CONSCIOUSNESS [None]
  - DIZZINESS [None]
  - HEADACHE [None]
  - HYPONATRAEMIA [None]
  - INAPPROPRIATE ANTIDIURETIC HORMONE SECRETION [None]
